FAERS Safety Report 17201640 (Version 1)
Quarter: 2019Q4

REPORT INFORMATION
  Report Type: Spontaneous
  Country: FR (occurrence: FR)
  Receive Date: 20191226
  Receipt Date: 20191226
  Transmission Date: 20200122
  Serious: Yes (Death, Other)
  Sender: FDA-Public Use
  Company Number: FR-MALLINCKRODT-T201909115

PATIENT
  Age: 59 Year
  Sex: Male

DRUGS (10)
  1. SOLUPRED [Concomitant]
     Indication: PRODUCT USED FOR UNKNOWN INDICATION
     Dosage: UNK
     Route: 065
     Dates: start: 20130628
  2. FIRDAPSE [Suspect]
     Active Substance: AMIFAMPRIDINE
     Dosage: 10 MILLIGRAM, QID
     Route: 048
     Dates: start: 20130701
  3. EUPANTOL [Concomitant]
     Active Substance: PANTOPRAZOLE SODIUM
     Indication: PRODUCT USED FOR UNKNOWN INDICATION
     Dosage: UNK
     Route: 065
     Dates: start: 20130627
  4. CONTRAMAL [Suspect]
     Active Substance: TRAMADOL HYDROCHLORIDE
     Indication: MYASTHENIC SYNDROME
     Dosage: 50 MILLIGRAM, PRN
     Route: 065
     Dates: start: 20130627
  5. ZOPHREN [Concomitant]
     Active Substance: ONDANSETRON
     Indication: PRODUCT USED FOR UNKNOWN INDICATION
     Dosage: UNK
     Route: 065
     Dates: start: 20130627
  6. LYRICA [Suspect]
     Active Substance: PREGABALIN
     Indication: MYASTHENIC SYNDROME
     Dosage: 25 MILLIGRAM, BID
     Route: 065
     Dates: start: 20130627
  7. OFIRMEV [Suspect]
     Active Substance: ACETAMINOPHEN
     Indication: MYASTHENIC SYNDROME
     Dosage: 1 GRAM, TID
     Route: 042
     Dates: start: 20130627
  8. AMLODIPINE [Concomitant]
     Active Substance: AMLODIPINE BESYLATE
     Indication: PRODUCT USED FOR UNKNOWN INDICATION
     Dosage: UNK
     Route: 065
     Dates: start: 20130627
  9. FIRDAPSE [Suspect]
     Active Substance: AMIFAMPRIDINE
     Indication: MYASTHENIC SYNDROME
     Dosage: 10 MILLIGRAM, TID
     Route: 048
     Dates: start: 20130625, end: 20130630
  10. KARDEGIC [Concomitant]
     Active Substance: ASPIRIN DL-LYSINE
     Indication: PRODUCT USED FOR UNKNOWN INDICATION
     Dosage: UNK
     Route: 065
     Dates: start: 20130627

REACTIONS (1)
  - Cardio-respiratory arrest [Fatal]

NARRATIVE: CASE EVENT DATE: 20130705
